FAERS Safety Report 13075496 (Version 2)
Quarter: 2017Q1

REPORT INFORMATION
  Report Type: Report from Study
  Country: ES (occurrence: ES)
  Receive Date: 20161230
  Receipt Date: 20170201
  Transmission Date: 20170428
  Serious: Yes (Hospitalization, Other)
  Sender: FDA-Public Use
  Company Number: ES-PFIZER INC-2016600368

PATIENT
  Age: 80 Year
  Sex: Female

DRUGS (10)
  1. LORAZEPAM. [Concomitant]
     Active Substance: LORAZEPAM
     Indication: INSOMNIA
     Dosage: 1 MG 1X/DAY (0-0-1)
     Route: 048
     Dates: start: 20090615
  2. QUETIAPINE. [Suspect]
     Active Substance: QUETIAPINE
     Indication: AGITATION
     Dosage: 2X/DAY (1 DF-0-1.5 DF)
     Route: 048
     Dates: start: 20120112
  3. PARACETAMOL [Concomitant]
     Active Substance: ACETAMINOPHEN
     Indication: PAIN
     Dosage: 1 DF, 3X/DAY (1-1-1)
     Route: 048
     Dates: start: 20090615
  4. DEPRAX /00447702/ [Interacting]
     Active Substance: TRAZODONE HYDROCHLORIDE
     Indication: DEPRESSION
     Dosage: 100 MG 1X/DAY (0-0-1)
     Route: 048
     Dates: start: 20120112
  5. IBUPROFEN. [Suspect]
     Active Substance: IBUPROFEN
     Indication: INTERVERTEBRAL DISC PROTRUSION
     Dosage: 600 MG 3X/DAY (1-1-1)
     Route: 048
     Dates: start: 20150430, end: 20150602
  6. ENALAPRIL [Concomitant]
     Active Substance: ENALAPRIL
     Indication: HYPERTENSION
     Dosage: UNK, 1X/DAY
     Route: 048
     Dates: start: 20090615
  7. RISPERDAL [Interacting]
     Active Substance: RISPERIDONE
     Indication: AGITATION
     Dosage: 1 MG, 2X/DAY (1-0-1)
     Route: 048
     Dates: start: 20150430, end: 20150605
  8. SIMVASTATIN. [Concomitant]
     Active Substance: SIMVASTATIN
     Indication: DYSLIPIDAEMIA
     Dosage: 20 MG 1X/DAY
     Route: 048
     Dates: start: 20090615
  9. NEURONTIN [Suspect]
     Active Substance: GABAPENTIN
     Indication: INTERVERTEBRAL DISC PROTRUSION
     Dosage: 300 MG 2X/DAY (1-0-1)
     Route: 048
     Dates: start: 20030503
  10. PROMETAX /01383201/ [Interacting]
     Active Substance: RIVASTIGMINE
     Indication: DEMENTIA ALZHEIMER^S TYPE
     Dosage: 1 DF, DAILY
     Route: 062
     Dates: start: 20120112

REACTIONS (10)
  - Cystitis [Unknown]
  - Acute kidney injury [Recovered/Resolved]
  - Drug interaction [Recovered/Resolved]
  - Hypertension [Unknown]
  - Hyperparathyroidism [Unknown]
  - Dementia [Unknown]
  - Peripheral venous disease [Unknown]
  - Vitamin D deficiency [Unknown]
  - Osteoarthritis [Unknown]
  - Cholelithiasis [Unknown]

NARRATIVE: CASE EVENT DATE: 20150605
